FAERS Safety Report 17424123 (Version 1)
Quarter: 2020Q1

REPORT INFORMATION
  Report Type: Spontaneous
  Country: SE (occurrence: SE)
  Receive Date: 20200217
  Receipt Date: 20200217
  Transmission Date: 20200409
  Serious: Yes (Hospitalization)
  Sender: FDA-Public Use
  Company Number: SE-TEVA-2020-SE-1186657

PATIENT
  Age: 60 Year
  Sex: Male

DRUGS (2)
  1. TOLTERODINE [Suspect]
     Active Substance: TOLTERODINE
     Dates: start: 20191201, end: 20191215
  2. FINASTERID [Concomitant]
     Active Substance: FINASTERIDE

REACTIONS (1)
  - Atrial flutter [Not Recovered/Not Resolved]

NARRATIVE: CASE EVENT DATE: 20191215
